FAERS Safety Report 16700998 (Version 1)
Quarter: 2019Q3

REPORT INFORMATION
  Report Type: Spontaneous
  Country: AT (occurrence: AT)
  Receive Date: 20190814
  Receipt Date: 20190814
  Transmission Date: 20191004
  Serious: Yes (Other)
  Sender: FDA-Public Use
  Company Number: AT-TEVA-2019-AT-1090360

PATIENT
  Sex: Female
  Weight: 75 kg

DRUGS (3)
  1. ALPRAZOLAM RATIOPHARM 1 MG - TABLETTEN [Suspect]
     Active Substance: ALPRAZOLAM
     Indication: ANXIETY
     Dosage: DOSING: 0.5-2MG
     Route: 065
  2. NOMEXOR 5MG [Concomitant]
     Route: 065
  3. TRITACE 5MG [Concomitant]
     Route: 065

REACTIONS (3)
  - Feeling of despair [Recovering/Resolving]
  - Feeling abnormal [Recovering/Resolving]
  - Suicidal ideation [Recovering/Resolving]
